FAERS Safety Report 15402685 (Version 1)
Quarter: 2018Q3

REPORT INFORMATION
  Report Type: Spontaneous
  Country: US (occurrence: US)
  Receive Date: 20180917
  Receipt Date: 20180917
  Transmission Date: 20181010
  Serious: Yes (Other)
  Sender: FDA-Public Use
  Company Number: None

PATIENT
  Age: 27 Year
  Sex: Female
  Weight: 67.5 kg

DRUGS (10)
  1. FLONASE [Concomitant]
     Active Substance: FLUTICASONE PROPIONATE
  2. XANAX [Concomitant]
     Active Substance: ALPRAZOLAM
  3. MACROBID [Suspect]
     Active Substance: NITROFURANTOIN\NITROFURANTOIN MONOHYDRATE
     Indication: URINARY TRACT INFECTION
     Dosage: ?          QUANTITY:1 DF DOSAGE FORM;?
     Route: 048
     Dates: start: 20180823, end: 20180915
  4. ALLEGRA [Concomitant]
     Active Substance: FEXOFENADINE HYDROCHLORIDE
  5. ADVIL [Concomitant]
     Active Substance: IBUPROFEN
  6. LAMICTAL [Concomitant]
     Active Substance: LAMOTRIGINE
  7. VYVANSE [Concomitant]
     Active Substance: LISDEXAMFETAMINE DIMESYLATE
  8. OCCASIONAL MULTIVITAMIN [Concomitant]
  9. JUNEL FE COMBINATION BIRTH CONTROL [Concomitant]
  10. TYLENOL [Concomitant]
     Active Substance: ACETAMINOPHEN

REACTIONS (11)
  - Dyspnoea [None]
  - Chest pain [None]
  - Hot flush [None]
  - Cough [None]
  - Anxiety [None]
  - Abdominal pain upper [None]
  - Fatigue [None]
  - Confusional state [None]
  - Sleep disorder [None]
  - Presyncope [None]
  - Mood altered [None]

NARRATIVE: CASE EVENT DATE: 20180826
